FAERS Safety Report 9418368 (Version 1)
Quarter: 2013Q3

REPORT INFORMATION
  Report Type: Spontaneous
  Country: JP (occurrence: JP)
  Receive Date: 20130725
  Receipt Date: 20130725
  Transmission Date: 20140515
  Serious: Yes (Other)
  Sender: FDA-Public Use
  Company Number: JP-AMGEN-JPNSP2013050608

PATIENT
  Age: 78 Year
  Sex: Female

DRUGS (6)
  1. ENBREL [Suspect]
     Indication: PRODUCT USED FOR UNKNOWN INDICATION
     Dosage: 10 MG, UNK
     Route: 065
     Dates: start: 20130605
  2. ENBREL [Suspect]
     Dosage: 25 MG, UNK
     Route: 065
     Dates: start: 20130612
  3. FERRUM                             /00023505/ [Concomitant]
     Dosage: UNK
  4. AZULFIDINE [Concomitant]
     Dosage: UNK
  5. ACINON [Concomitant]
     Dosage: UNK
  6. CELECOX [Concomitant]
     Dosage: UNK

REACTIONS (1)
  - Interstitial lung disease [Unknown]
